FAERS Safety Report 9596487 (Version 2)
Quarter: 2013Q4

REPORT INFORMATION
  Report Type: Report from Study
  Country: US (occurrence: US)
  Receive Date: 20131004
  Receipt Date: 20131108
  Transmission Date: 20140711
  Serious: Yes (Other)
  Sender: FDA-Public Use
  Company Number: US-US-EMD SERONO, INC.-7240860

PATIENT
  Age: 57 Year
  Sex: Female

DRUGS (3)
  1. REBIF [Suspect]
     Indication: PRODUCT USED FOR UNKNOWN INDICATION
     Route: 058
     Dates: start: 20130305
  2. FLAGYL                             /00012501/ [Concomitant]
     Indication: TONGUE DISCOLOURATION
  3. CIPRO                              /00697201/ [Concomitant]
     Indication: TONGUE DISCOLOURATION

REACTIONS (4)
  - Diverticulitis [Recovered/Resolved]
  - Hydronephrosis [Not Recovered/Not Resolved]
  - Head discomfort [Recovering/Resolving]
  - Anxiety [Recovering/Resolving]
